FAERS Safety Report 7884860-8 (Version None)
Quarter: 2011Q4

REPORT INFORMATION
  Report Type: 
  Country: None (occurrence: None)
  Receive Date: 20111102
  Receipt Date: 20111026
  Transmission Date: 20120403
  Serious: Yes (Hospitalization)
  Sender: FDA-Public Use
  Company Number: PHHY2011JP75855

PATIENT
  Sex: Male
  Weight: 73 kg

DRUGS (6)
  1. DIOVAN [Suspect]
     Dosage: 40 MG, DAILY
     Route: 048
     Dates: start: 20110920
  2. ADALAT [Concomitant]
     Indication: HYPERTENSION
     Dosage: 40 MG, UNK
     Route: 048
  3. ADALAT [Concomitant]
     Dosage: 40 MG, UNK
     Route: 048
  4. GLYBURIDE [Concomitant]
     Indication: TYPE 2 DIABETES MELLITUS
     Dosage: 2.5 MG, UNK
     Route: 048
     Dates: start: 20041224
  5. GLYBURIDE [Concomitant]
     Dosage: 2.5 MG, UNK
     Route: 048
  6. DIOVAN [Suspect]
     Dosage: 40 MG, DAILY
     Route: 048
     Dates: start: 20041224, end: 20110714

REACTIONS (1)
  - PNEUMONIA LEGIONELLA [None]
